FAERS Safety Report 7274504-0 (Version None)
Quarter: 2011Q1

REPORT INFORMATION
  Report Type: 
  Country: None (occurrence: None)
  Receive Date: 20110201
  Receipt Date: 20110201
  Transmission Date: 20110831
  Serious: Yes (Other)
  Sender: FDA-Public Use
  Company Number: None

PATIENT
  Age: 74 Year
  Sex: Female
  Weight: 100 kg

DRUGS (2)
  1. ACTIVASE [Suspect]
     Indication: CEREBROVASCULAR ACCIDENT
     Dosage: ALTEPLASE 81MG NOW IV
     Route: 042
     Dates: start: 20110113
  2. ACTIVASE [Suspect]

REACTIONS (2)
  - INFUSION RELATED REACTION [None]
  - CONVULSION [None]
